FAERS Safety Report 9208684 (Version 1)
Quarter: 2013Q1

REPORT INFORMATION
  Report Type: Spontaneous
  Country: US (occurrence: None)
  Receive Date: 20120806
  Receipt Date: 20120806
  Transmission Date: 20140127
  Serious: Yes (Other)
  Sender: FDA-Public Use
  Company Number: 2011-16318

PATIENT
  Age: 59 Year
  Sex: Female
  Weight: 62.1 kg

DRUGS (7)
  1. CIPROFLOXACIN [Suspect]
     Indication: URINARY TRACT INFECTION
     Route: 048
     Dates: start: 20111010, end: 20111011
  2. CIPROFLOXACIN [Suspect]
     Indication: CONVULSION
     Route: 048
     Dates: start: 20111010, end: 20111011
  3. LAMOTRIGINE (LAMOTRIGINE) [Suspect]
     Dates: start: 20111006
  4. CELEXA (CITALOPRAM HYDROBROMIDE) [Concomitant]
  5. COROFOLIN [Concomitant]
  6. TRAZODONE (TRAZODONE) [Concomitant]
  7. VITAMIN D [Concomitant]

REACTIONS (1)
  - Convulsion [None]
